FAERS Safety Report 15124240 (Version 1)
Quarter: 2018Q3

REPORT INFORMATION
  Report Type: Spontaneous
  Country: US (occurrence: US)
  Receive Date: 20180710
  Receipt Date: 20180710
  Transmission Date: 20181010
  Serious: No
  Sender: FDA-Public Use
  Company Number: US-TEVA-2018-US-921680

PATIENT
  Age: 32 Year
  Sex: Female

DRUGS (1)
  1. AUSTEDO [Suspect]
     Active Substance: DEUTETRABENAZINE
     Route: 065

REACTIONS (2)
  - Product storage error [Unknown]
  - Intercepted drug dispensing error [Unknown]

NARRATIVE: CASE EVENT DATE: 20180701
